FAERS Safety Report 7510546-5 (Version None)
Quarter: 2011Q2

REPORT INFORMATION
  Report Type: 
  Country: None (occurrence: None)
  Receive Date: 20110530
  Receipt Date: 20110519
  Transmission Date: 20111010
  Serious: Yes (Hospitalization, Other)
  Sender: FDA-Public Use
  Company Number: US-BIOGENIDEC-2007BI008965

PATIENT
  Sex: Female
  Weight: 131 kg

DRUGS (14)
  1. AVAPRO [Concomitant]
     Indication: HYPERTENSION
  2. ARTHROTEC [Concomitant]
     Indication: ARTHRITIS
     Dates: end: 20040301
  3. AVONEX [Suspect]
     Indication: MULTIPLE SCLEROSIS
     Route: 030
     Dates: start: 20020701, end: 20031201
  4. ZEBETA [Concomitant]
     Indication: ARRHYTHMIA
  5. LORTAB [Concomitant]
     Indication: BACK PAIN
  6. ALLOPURINOL [Concomitant]
     Indication: GOUT
  7. AVONEX [Suspect]
     Route: 030
     Dates: start: 20031201, end: 20070306
  8. ACETAMINOPHEN [Concomitant]
     Indication: PREMEDICATION
  9. CARBIDOPA [Concomitant]
     Indication: RESTLESSNESS
  10. FIORICET [Concomitant]
     Indication: HEADACHE
  11. ROXICODONE [Concomitant]
     Indication: PREMEDICATION
  12. LASIX [Concomitant]
     Indication: OEDEMA PERIPHERAL
     Dates: end: 20040301
  13. ZAROXOLYN [Concomitant]
     Indication: OEDEMA PERIPHERAL
     Dates: end: 20040301
  14. FROVA [Concomitant]
     Indication: MIGRAINE

REACTIONS (22)
  - HYPERTENSION [None]
  - ANAEMIA [None]
  - VISION BLURRED [None]
  - LIGAMENT RUPTURE [None]
  - ALOPECIA [None]
  - MUSCULAR WEAKNESS [None]
  - FATIGUE [None]
  - DEPRESSION [None]
  - ROAD TRAFFIC ACCIDENT [None]
  - MELAENA [None]
  - MULTIPLE SCLEROSIS [None]
  - INTERVERTEBRAL DISC PROTRUSION [None]
  - MIGRAINE [None]
  - RENAL IMPAIRMENT [None]
  - ARTHRITIS [None]
  - MENISCUS LESION [None]
  - GASTRIC ULCER HAEMORRHAGE [None]
  - RENAL FAILURE [None]
  - TYPE 2 DIABETES MELLITUS [None]
  - SPEECH DISORDER [None]
  - HEADACHE [None]
  - INFLUENZA LIKE ILLNESS [None]
